FAERS Safety Report 4489117-3 (Version None)
Quarter: 2004Q4

REPORT INFORMATION
  Report Type: 
  Country: None (occurrence: None)
  Receive Date: 20041029
  Receipt Date: 20041001
  Transmission Date: 20050328
  Serious: Yes (Hospitalization)
  Sender: FDA-Public Use
  Company Number: DE-MERCK-0410DEU00031

PATIENT
  Age: 45 Year
  Sex: Male

DRUGS (6)
  1. VIOXX [Suspect]
     Indication: PAIN
     Route: 048
     Dates: start: 20010301, end: 20041004
  2. VIOXX [Suspect]
     Indication: INTERVERTEBRAL DISC DISPLACEMENT
     Route: 048
     Dates: start: 20010301, end: 20041004
  3. OXYCODONE HYDROCHLORIDE [Concomitant]
     Route: 065
  4. TOLPERISONE HYDROCHLORIDE [Concomitant]
     Route: 065
  5. OMEPRAZOLE [Concomitant]
     Route: 065
  6. FLUPIRTINE MALEATE [Concomitant]
     Route: 065

REACTIONS (2)
  - CEREBROVASCULAR ACCIDENT [None]
  - PRESCRIBED OVERDOSE [None]
